FAERS Safety Report 15486408 (Version 1)
Quarter: 2018Q4

REPORT INFORMATION
  Report Type: Spontaneous
  Country: US (occurrence: US)
  Receive Date: 20181011
  Receipt Date: 20181011
  Transmission Date: 20190205
  Serious: No
  Sender: FDA-Public Use
  Company Number: US-ZYDUS-019036

PATIENT
  Age: 31 Year
  Sex: Female

DRUGS (5)
  1. METFORMIN [Suspect]
     Active Substance: METFORMIN HYDROCHLORIDE
     Indication: DIABETES MELLITUS
     Route: 048
     Dates: start: 20180122, end: 20180127
  2. CETIRIZINE [Concomitant]
     Active Substance: CETIRIZINE HYDROCHLORIDE
     Indication: SEASONAL ALLERGY
  3. ATORVASTATIN [Concomitant]
     Active Substance: ATORVASTATIN
     Indication: DISEASE RISK FACTOR
  4. FLUTICASONE. [Concomitant]
     Active Substance: FLUTICASONE
     Indication: SEASONAL ALLERGY
  5. IBUPROFEN. [Concomitant]
     Active Substance: IBUPROFEN
     Indication: TEMPOROMANDIBULAR JOINT SYNDROME

REACTIONS (6)
  - Anal incontinence [Recovered/Resolved]
  - Body temperature decreased [Recovered/Resolved]
  - Haematochezia [Recovered/Resolved]
  - Sluggishness [Recovered/Resolved]
  - Diarrhoea [Recovered/Resolved]
  - Mental impairment [Recovered/Resolved]

NARRATIVE: CASE EVENT DATE: 20180123
